FAERS Safety Report 16968724 (Version 1)
Quarter: 2019Q4

REPORT INFORMATION
  Report Type: Spontaneous
  Country: US (occurrence: US)
  Receive Date: 20191029
  Receipt Date: 20191029
  Transmission Date: 20200122
  Serious: Yes (Hospitalization, Other)
  Sender: FDA-Public Use
  Company Number: US-GLAND PHARMA LIMITED-2076117

PATIENT
  Age: 72 Year
  Sex: Male

DRUGS (2)
  1. CISPLATIN. [Suspect]
     Active Substance: CISPLATIN
     Indication: TRANSITIONAL CELL CARCINOMA
  2. GEMCITABINE. [Suspect]
     Active Substance: GEMCITABINE

REACTIONS (4)
  - Anaemia [Unknown]
  - Fatigue [Unknown]
  - Fistula of small intestine [Recovered/Resolved]
  - Haematochezia [Unknown]
